FAERS Safety Report 5782639-4 (Version None)
Quarter: 2008Q2

REPORT INFORMATION
  Report Type: 
  Country: None (occurrence: None)
  Receive Date: 20080624
  Receipt Date: 20080612
  Transmission Date: 20081010
  Serious: Yes (Congenital Anomaly)
  Sender: FDA-Public Use
  Company Number: FI-BAYER-200819078GPV

PATIENT

DRUGS (1)
  1. YASMIN [Suspect]
     Route: 064

REACTIONS (1)
  - LIMB REDUCTION DEFECT [None]
